FAERS Safety Report 13935034 (Version 3)
Quarter: 2017Q4

REPORT INFORMATION
  Report Type: Spontaneous
  Country: CH (occurrence: CH)
  Receive Date: 20170905
  Receipt Date: 20171031
  Transmission Date: 20180320
  Serious: Yes (Other)
  Sender: FDA-Public Use
  Company Number: PHHY2017CH126549

PATIENT
  Sex: Female

DRUGS (2)
  1. FLUOXETINE [Suspect]
     Active Substance: FLUOXETINE HYDROCHLORIDE
     Indication: DEPRESSION
     Dosage: 20 MG, QD
     Route: 065
     Dates: start: 20170224, end: 20170427
  2. LEXOTANIL [Concomitant]
     Active Substance: BROMAZEPAM
     Indication: ANXIETY
     Dosage: 1 DF, QD
     Route: 065
     Dates: start: 20170224

REACTIONS (2)
  - Breast discomfort [Not Recovered/Not Resolved]
  - Breast complication associated with device [Not Recovered/Not Resolved]

NARRATIVE: CASE EVENT DATE: 20170725
